FAERS Safety Report 18160444 (Version 2)
Quarter: 2020Q4

REPORT INFORMATION
  Report Type: Spontaneous
  Country: GB (occurrence: GB)
  Receive Date: 20200818
  Receipt Date: 20201203
  Transmission Date: 20210113
  Serious: Yes (Death, Hospitalization, Other)
  Sender: FDA-Public Use
  Company Number: GB-SA-2020SA215822

PATIENT

DRUGS (15)
  1. LEMTRADA [Suspect]
     Active Substance: ALEMTUZUMAB
     Dosage: 12 MG
     Route: 041
     Dates: start: 20190302, end: 20190304
  2. CARBIMAZOLE [Concomitant]
     Active Substance: CARBIMAZOLE
  3. PROPRANOLOL [Concomitant]
     Active Substance: PROPRANOLOL HYDROCHLORIDE
  4. MIRTAZAPINE. [Concomitant]
     Active Substance: MIRTAZAPINE
  5. BACLOFEN. [Concomitant]
     Active Substance: BACLOFEN
  6. SOLIFENACIN [Concomitant]
     Active Substance: SOLIFENACIN
  7. VITAMIN D [Concomitant]
     Active Substance: VITAMIN D NOS
  8. TOPIRAMATE. [Concomitant]
     Active Substance: TOPIRAMATE
  9. COCODAMOL [Concomitant]
     Active Substance: ACETAMINOPHEN\CODEINE PHOSPHATE
  10. ALENDRONIC ACID [Concomitant]
     Active Substance: ALENDRONIC ACID
  11. LACTULOSE. [Concomitant]
     Active Substance: LACTULOSE
  12. RANITIDINE. [Concomitant]
     Active Substance: RANITIDINE
  13. GABAPENTIN. [Concomitant]
     Active Substance: GABAPENTIN
  14. AMITRIPTYLINE [Concomitant]
     Active Substance: AMITRIPTYLINE
  15. LEMTRADA [Suspect]
     Active Substance: ALEMTUZUMAB
     Indication: RELAPSING-REMITTING MULTIPLE SCLEROSIS
     Dosage: 12 MG, QD
     Route: 041
     Dates: start: 20180212, end: 20180216

REACTIONS (9)
  - Basedow^s disease [Unknown]
  - Pneumonia [Unknown]
  - Fall [Unknown]
  - Immune thrombocytopenia [Fatal]
  - Contusion [Unknown]
  - Infection [Unknown]
  - Subdural haemorrhage [Fatal]
  - Vomiting [Unknown]
  - Loss of consciousness [Unknown]

NARRATIVE: CASE EVENT DATE: 201907
